FAERS Safety Report 19922407 (Version 1)
Quarter: 2021Q4

REPORT INFORMATION
  Report Type: Spontaneous
  Country: US (occurrence: US)
  Receive Date: 20211005
  Receipt Date: 20211005
  Transmission Date: 20220303
  Serious: No
  Sender: FDA-Public Use
  Company Number: US-SANOFI-00788318

PATIENT
  Sex: Male

DRUGS (1)
  1. DUPIXENT [Suspect]
     Active Substance: DUPILUMAB
     Dosage: 300 MG
     Route: 065
     Dates: start: 202109

REACTIONS (5)
  - Erythema of eyelid [Unknown]
  - Multiple allergies [Unknown]
  - Pruritus [Unknown]
  - Swelling of eyelid [Unknown]
  - Urticaria [Unknown]
